FAERS Safety Report 8403062-X (Version None)
Quarter: 2012Q2

REPORT INFORMATION
  Report Type: 
  Country: None (occurrence: None)
  Receive Date: 20120601
  Receipt Date: 20120521
  Transmission Date: 20120825
  Serious: Yes (Life-Threatening, Other)
  Sender: FDA-Public Use
  Company Number: US-ELI_LILLY_AND_COMPANY-US201106008050

PATIENT
  Sex: Female

DRUGS (13)
  1. FORTEO [Suspect]
     Dosage: 20 UG, QD
  2. FORTEO [Suspect]
     Dosage: 20 UG, QD
  3. VITAMIN B-12 [Concomitant]
  4. FORTEO [Suspect]
     Dosage: 20 UG, QD
  5. FORTEO [Suspect]
     Dosage: 20 UG, QD
  6. FORTEO [Suspect]
     Dosage: 20 UG, QD
  7. FORTEO [Suspect]
     Dosage: 20 UG, QD
  8. FORTEO [Suspect]
     Dosage: 20 UG, QD
  9. VITAMIN TAB [Concomitant]
  10. FORTEO [Suspect]
     Indication: OSTEOPOROSIS
     Dosage: 20 UG, QD
     Dates: start: 20110601
  11. FORTEO [Suspect]
     Dosage: 20 UG, QD
  12. FORTEO [Suspect]
     Dosage: 20 UG, QD
  13. IRON [Concomitant]

REACTIONS (41)
  - PHARYNGEAL DISORDER [None]
  - DECREASED ACTIVITY [None]
  - SLEEP DISORDER DUE TO A GENERAL MEDICAL CONDITION [None]
  - FATIGUE [None]
  - FEELING ABNORMAL [None]
  - MENTAL IMPAIRMENT [None]
  - PAIN IN EXTREMITY [None]
  - FEAR OF NEEDLES [None]
  - NECK PAIN [None]
  - BALANCE DISORDER [None]
  - INFLUENZA [None]
  - CONTUSION [None]
  - BLOOD PRESSURE INCREASED [None]
  - DYSPNOEA [None]
  - DIARRHOEA [None]
  - DIZZINESS [None]
  - INJECTION SITE PAIN [None]
  - HYPOAESTHESIA [None]
  - BLOOD PRESSURE ABNORMAL [None]
  - TENDERNESS [None]
  - HYPERHIDROSIS [None]
  - NASOPHARYNGITIS [None]
  - INJECTION SITE HAEMATOMA [None]
  - MALAISE [None]
  - FEELING HOT [None]
  - NERVOUSNESS [None]
  - PAIN [None]
  - BLOOD PRESSURE DECREASED [None]
  - GAIT DISTURBANCE [None]
  - BACK PAIN [None]
  - INJECTION SITE ERYTHEMA [None]
  - MUSCLE SPASMS [None]
  - NAUSEA [None]
  - BONE PAIN [None]
  - NERVE INJURY [None]
  - HOT FLUSH [None]
  - VITAMIN D DECREASED [None]
  - TREMOR [None]
  - HYPOXIA [None]
  - HEART RATE INCREASED [None]
  - ANXIETY [None]
